FAERS Safety Report 4344404-4 (Version None)
Quarter: 2004Q2

REPORT INFORMATION
  Report Type: 
  Country: None (occurrence: None)
  Receive Date: 20040419
  Receipt Date: 20040406
  Transmission Date: 20050107
  Serious: Yes (Other)
  Sender: FDA-Public Use
  Company Number: FRWYE689906APR04

PATIENT
  Age: 33 Year
  Sex: Male

DRUGS (1)
  1. EFFEXOR [Suspect]
     Dosage: 37.5 MG 2 X PER 1 DAY
     Route: 048
     Dates: start: 20040401, end: 20040405

REACTIONS (3)
  - CHOLESTASIS [None]
  - HEPATITIS [None]
  - VOMITING [None]
